FAERS Safety Report 25956267 (Version 1)
Quarter: 2025Q4

REPORT INFORMATION
  Report Type: Spontaneous
  Country: GB (occurrence: None)
  Receive Date: 20251024
  Receipt Date: 20251024
  Transmission Date: 20260119
  Serious: Yes (Other)
  Sender: ORGANON
  Company Number: GB-ORGANON-O2510GBR002005

PATIENT
  Sex: Female

DRUGS (1)
  1. NEXPLANON [Suspect]
     Active Substance: ETONOGESTREL
     Dosage: 1 IMPLANT IN LEFT ARM

REACTIONS (2)
  - Multiple sclerosis [Not Recovered/Not Resolved]
  - Epilepsy [Not Recovered/Not Resolved]
